FAERS Safety Report 5486515-6 (Version None)
Quarter: 2007Q4

REPORT INFORMATION
  Report Type: 
  Country: None (occurrence: None)
  Receive Date: 20071012
  Receipt Date: 20071002
  Transmission Date: 20080405
  Serious: Yes (Hospitalization, Other)
  Sender: FDA-Public Use
  Company Number: 2007-04501

PATIENT
  Age: 3 Year
  Sex: Female
  Weight: 22.7 kg

DRUGS (9)
  1. ENALAPRIL MALEATE [Suspect]
     Indication: HYPERTENSION
     Dosage: 1 TABLET, DAILY, ORAL
     Route: 048
     Dates: start: 20040430, end: 20060601
  2. ENALAPRIL MALEATE [Suspect]
     Indication: HYPERTENSION
     Dosage: 1 TABLET, DAILY, ORAL
     Route: 048
     Dates: start: 20070907, end: 20071002
  3. ENALAPRIL MALEATE [Suspect]
     Indication: HYPERTENSION
     Dosage: 1 TABLET , DAILY, (ALT W/ WATSON),ORAL
     Route: 048
     Dates: start: 20040430, end: 20060601
  4. ENALAPRIL MALEATE [Suspect]
     Indication: HYPERTENSION
     Dosage: 1 TABLET , DAILY, (ALT W/ WATSON),ORAL
     Route: 048
     Dates: start: 20070907, end: 20071002
  5. AMLODIPINE [Suspect]
     Indication: HYPERTENSION
     Dosage: ORAL
     Route: 048
     Dates: start: 20040430, end: 20071002
  6. PREVACID [Suspect]
     Dates: start: 20040101, end: 20060601
  7. DIFLUCAN [Suspect]
     Indication: FUNGAL INFECTION
     Dosage: ORAL
     Route: 048
     Dates: start: 20070829, end: 20070925
  8. PREDNISOLONE [Concomitant]
  9. CLOSPORINE (CICLOSPORIN) [Concomitant]

REACTIONS (25)
  - AURICULAR SWELLING [None]
  - BACTERAEMIA [None]
  - BACTERIAL INFECTION [None]
  - BACTERIAL SEPSIS [None]
  - BLOOD PRESSURE INADEQUATELY CONTROLLED [None]
  - BONE MARROW DISORDER [None]
  - DERMATITIS ALLERGIC [None]
  - DERMATITIS ATOPIC [None]
  - DERMATITIS CONTACT [None]
  - DRUG HYPERSENSITIVITY [None]
  - GRAFT VERSUS HOST DISEASE [None]
  - HELICOBACTER SEPSIS [None]
  - ILL-DEFINED DISORDER [None]
  - INFLAMMATION [None]
  - LIP SWELLING [None]
  - NEUTROPENIA [None]
  - NO THERAPEUTIC RESPONSE [None]
  - RESPIRATORY SYNCYTIAL VIRUS INFECTION [None]
  - SEPSIS [None]
  - SKIN EXFOLIATION [None]
  - SKIN FISSURES [None]
  - SKIN HAEMORRHAGE [None]
  - STAPHYLOCOCCAL SEPSIS [None]
  - SWELLING FACE [None]
  - URTICARIA [None]
